FAERS Safety Report 24120965 (Version 2)
Quarter: 2025Q1

REPORT INFORMATION
  Report Type: Spontaneous
  Country: US (occurrence: US)
  Receive Date: 20240722
  Receipt Date: 20250107
  Transmission Date: 20250409
  Serious: Yes (Other)
  Sender: PFIZER
  Company Number: US-PFIZER INC-PV202300038588

PATIENT
  Age: 70 Year
  Sex: Female

DRUGS (2)
  1. BOSULIF [Suspect]
     Active Substance: BOSUTINIB MONOHYDRATE
     Indication: Chronic myeloid leukaemia
     Dosage: 100 MG, 1X/DAY (100MG, 30 DAY SUPPLY)
     Route: 048
  2. BOSULIF [Suspect]
     Active Substance: BOSUTINIB MONOHYDRATE
     Dosage: 200 MG, DAILY (2 TABS PO DAILY)
     Route: 048

REACTIONS (2)
  - Pneumonia [Unknown]
  - Memory impairment [Unknown]
